FAERS Safety Report 8074177-3 (Version None)
Quarter: 2011Q4

REPORT INFORMATION
  Report Type: 
  Country: None (occurrence: None)
  Receive Date: 20111221
  Receipt Date: 20110412
  Transmission Date: 20120403
  Serious: Yes (Other)
  Sender: FDA-Public Use
  Company Number: PHEH2009US12394

PATIENT
  Age: 81 Year
  Sex: Male
  Weight: 97 kg

DRUGS (8)
  1. ASPIRIN [Concomitant]
  2. EXJADE [Suspect]
     Dosage: 750 MG, QD, ORAL
     Route: 048
     Dates: start: 20090807, end: 20090903
  3. LASIX [Suspect]
     Dosage: 40 MG, QD
  4. METOPROLOL TARTRATE [Concomitant]
  5. DESFERAL [Concomitant]
  6. ACETAMINOPHEN [Concomitant]
  7. PREDNISOLONE [Concomitant]
  8. OMEPRAZOLE [Concomitant]

REACTIONS (2)
  - DRUG INTOLERANCE [None]
  - BLOOD CREATININE INCREASED [None]
